FAERS Safety Report 5135192-2 (Version None)
Quarter: 2006Q4

REPORT INFORMATION
  Report Type: 
  Country: None (occurrence: None)
  Receive Date: 20061024
  Receipt Date: 20061024
  Transmission Date: 20070319
  Serious: Yes (Death)
  Sender: FDA-Public Use
  Company Number: None

PATIENT
  Age: 35 Year
  Sex: Female
  Weight: 85.2762 kg

DRUGS (2)
  1. LEVAQUIN [Suspect]
     Indication: PNEUMONIA
     Dosage: 500 MG DAILY PO
     Route: 048
     Dates: start: 20060921, end: 20060921
  2. ORENCIA [Suspect]
     Indication: RHEUMATOID ARTHRITIS
     Dosage: 750 MG MONTHLY IV DRIP
     Route: 041
     Dates: start: 20060718, end: 20060919

REACTIONS (12)
  - ANGIONEUROTIC OEDEMA [None]
  - ANOXIC ENCEPHALOPATHY [None]
  - DEEP VEIN THROMBOSIS [None]
  - DRUG HYPERSENSITIVITY [None]
  - HAEMORRHAGE [None]
  - OEDEMA [None]
  - PLEURAL EFFUSION [None]
  - PNEUMONIA [None]
  - PROCEDURAL COMPLICATION [None]
  - RESPIRATORY ARREST [None]
  - RESPIRATORY DISTRESS [None]
  - VENTRICULAR TACHYCARDIA [None]
